FAERS Safety Report 12275566 (Version 1)
Quarter: 2016Q2

REPORT INFORMATION
  Report Type: Spontaneous
  Country: US (occurrence: US)
  Receive Date: 20160417
  Receipt Date: 20160417
  Transmission Date: 20160815
  Serious: No
  Sender: FDA-Public Use
  Company Number: US-CELGENEUS-USA-2016042519

PATIENT
  Sex: Male
  Weight: 78.09 kg

DRUGS (14)
  1. REVLIMID [Suspect]
     Active Substance: LENALIDOMIDE
     Route: 048
     Dates: start: 201012
  2. REVLIMID [Suspect]
     Active Substance: LENALIDOMIDE
     Route: 048
     Dates: start: 201503
  3. GABAPENTIN. [Concomitant]
     Active Substance: GABAPENTIN
     Indication: URINARY INCONTINENCE
     Dosage: 20
     Route: 065
  4. REVLIMID [Suspect]
     Active Substance: LENALIDOMIDE
     Route: 048
     Dates: start: 201512
  5. FISH OIL [Concomitant]
     Active Substance: FISH OIL
     Indication: URINARY INCONTINENCE
     Route: 065
  6. ASPIRIN. [Concomitant]
     Active Substance: ASPIRIN
     Indication: URINARY INCONTINENCE
     Dosage: 1000 MILLIGRAM
     Route: 048
  7. COENZYME Q 10 [Concomitant]
     Indication: URINARY INCONTINENCE
     Dosage: 4
     Route: 065
  8. LIPITOR [Concomitant]
     Active Substance: ATORVASTATIN CALCIUM
     Indication: URINARY INCONTINENCE
     Route: 048
  9. REVLIMID [Suspect]
     Active Substance: LENALIDOMIDE
     Indication: PLASMA CELL MYELOMA
     Route: 048
     Dates: start: 20100915
  10. CITALOPRAM [Concomitant]
     Active Substance: CITALOPRAM HYDROBROMIDE
     Indication: URINARY INCONTINENCE
     Dosage: 5 MILLIGRAM
     Route: 065
  11. EQL OMEPRAZOLE DR [Concomitant]
     Indication: URINARY INCONTINENCE
     Dosage: 81 MILLIGRAM
     Route: 065
  12. SINEMET [Concomitant]
     Active Substance: CARBIDOPA\LEVODOPA
     Indication: URINARY INCONTINENCE
     Dosage: 10-100 MG
     Route: 048
  13. TUMS [Concomitant]
     Active Substance: CALCIUM CARBONATE
     Indication: URINARY INCONTINENCE
     Dosage: 300 MILLIGRAM
     Route: 048
  14. DEXAMETHASONE. [Concomitant]
     Active Substance: DEXAMETHASONE
     Indication: URINARY INCONTINENCE
     Route: 065

REACTIONS (1)
  - Urinary incontinence [Unknown]
